FAERS Safety Report 9082452 (Version 1)
Quarter: 2013Q1

REPORT INFORMATION
  Report Type: Spontaneous
  Country: US (occurrence: US)
  Receive Date: 20130130
  Receipt Date: 20130130
  Transmission Date: 20140127
  Serious: No
  Sender: FDA-Public Use
  Company Number: US-ABBOTT-12P-163-0966862-00

PATIENT
  Sex: Male
  Weight: 81.72 kg

DRUGS (7)
  1. HUMIRA 40 MG/0.8 ML PEN [Suspect]
     Indication: ARTHRITIS REACTIVE
     Route: 058
     Dates: start: 201011
  2. FLEXERIL [Concomitant]
     Indication: MUSCLE SPASMS
  3. VICODIN [Concomitant]
     Indication: PAIN
  4. UNKNOWN ANTIINFLAMMATORY MEDICATION [Concomitant]
     Indication: INFLAMMATION
  5. UNKNOWN ANTIINFLAMMATORY MEDICATION [Concomitant]
     Indication: PAIN
  6. STEROID DOSE PACK [Concomitant]
     Indication: ARTHRITIS
  7. ALLOPURINOL [Concomitant]
     Indication: PRODUCT USED FOR UNKNOWN INDICATION

REACTIONS (1)
  - Off label use [Not Recovered/Not Resolved]
